FAERS Safety Report 9779257 (Version 1)
Quarter: 2013Q4

REPORT INFORMATION
  Report Type: Spontaneous
  Country: US (occurrence: US)
  Receive Date: 20131223
  Receipt Date: 20131223
  Transmission Date: 20140711
  Serious: No
  Sender: FDA-Public Use
  Company Number: US-PFIZER INC-2013365295

PATIENT
  Age: 22 Year
  Sex: Male
  Weight: 81.63 kg

DRUGS (2)
  1. SERTRALINE [Suspect]
     Indication: DEPRESSION
     Dosage: 100 MG, 2X/DAY
     Route: 048
  2. TENEX [Concomitant]
     Dosage: UNK
     Dates: end: 201311

REACTIONS (1)
  - Gynaecomastia [Not Recovered/Not Resolved]
